FAERS Safety Report 22532720 (Version 1)
Quarter: 2023Q2

REPORT INFORMATION
  Report Type: Report from Study
  Country: US (occurrence: US)
  Receive Date: 20230607
  Receipt Date: 20230607
  Transmission Date: 20230722
  Serious: Yes (Other)
  Sender: FDA-Public Use
  Company Number: US-002147023-NVSC2020US210866

PATIENT
  Age: 63 Year
  Sex: Female
  Weight: 47.2 kg

DRUGS (8)
  1. BEOVU [Suspect]
     Active Substance: BROLUCIZUMAB-DBLL
     Indication: Neovascular age-related macular degeneration
     Dosage: 6 MG, Q4W
     Route: 031
     Dates: start: 20190506, end: 20200629
  2. KETOTIFEN [Concomitant]
     Active Substance: KETOTIFEN
     Indication: Seasonal allergy
     Dosage: UNK
     Route: 065
     Dates: start: 20170901
  3. CALCIUM [Concomitant]
     Active Substance: CALCIUM
     Indication: General physical condition
     Dosage: UNK
     Route: 065
     Dates: start: 20090901
  4. VITAMIN D3 [Concomitant]
     Active Substance: CHOLECALCIFEROL
     Indication: General physical condition
     Dosage: UNK
     Route: 065
     Dates: start: 20090901
  5. ASCORBIC ACID [Concomitant]
     Active Substance: ASCORBIC ACID
     Indication: General physical condition
     Dosage: UNK
     Route: 065
     Dates: start: 20090901
  6. VITAMINS [Concomitant]
     Active Substance: VITAMINS
     Indication: General physical condition
     Dosage: UNK
     Route: 065
     Dates: start: 20090101
  7. ASPIRIN [Concomitant]
     Active Substance: ASPIRIN
     Indication: Prophylaxis
     Dosage: UNK
     Route: 065
     Dates: start: 20180501
  8. MINERALS\VITAMINS [Concomitant]
     Active Substance: MINERALS\VITAMINS
     Indication: Age-related macular degeneration
     Dosage: UNK
     Route: 065
     Dates: start: 20180128

REACTIONS (1)
  - Vitritis [Not Recovered/Not Resolved]

NARRATIVE: CASE EVENT DATE: 20200727
